FAERS Safety Report 4508800-4 (Version None)
Quarter: 2004Q4

REPORT INFORMATION
  Report Type: 
  Country: None (occurrence: None)
  Receive Date: 20041122
  Receipt Date: 20041122
  Transmission Date: 20050328
  Serious: Yes (Death)
  Sender: FDA-Public Use
  Company Number: None

PATIENT
  Age: 13 Year
  Sex: Male
  Weight: 35 kg

DRUGS (1)
  1. CYCLOSPORINE [Suspect]
     Indication: BONE MARROW TRANSPLANT
     Dosage: IV CONTINOUS DRIP
     Route: 041
     Dates: start: 20040806, end: 20041027

REACTIONS (3)
  - CANDIDIASIS [None]
  - CONVULSION [None]
  - HYPOTENSION [None]
